FAERS Safety Report 5632774-6 (Version None)
Quarter: 2008Q1

REPORT INFORMATION
  Report Type: 
  Country: None (occurrence: None)
  Receive Date: 20080221
  Receipt Date: 20080212
  Transmission Date: 20080703
  Serious: Yes (Hospitalization)
  Sender: FDA-Public Use
  Company Number: US-JNJFOC-20080202930

PATIENT
  Sex: Female
  Weight: 53.07 kg

DRUGS (5)
  1. TOPAMAX [Suspect]
     Route: 048
  2. TOPAMAX [Suspect]
     Route: 048
  3. TOPAMAX [Suspect]
     Indication: MIGRAINE PROPHYLAXIS
     Route: 048
  4. NORTRIPTYLINE HCL [Concomitant]
     Indication: IRRITABLE BOWEL SYNDROME
  5. BONIVA [Concomitant]
     Indication: OSTEOPENIA

REACTIONS (4)
  - ANOREXIA [None]
  - NIGHT SWEATS [None]
  - SURGERY [None]
  - WEIGHT DECREASED [None]
